FAERS Safety Report 18411002 (Version 1)
Quarter: 2020Q4

REPORT INFORMATION
  Report Type: Spontaneous
  Country: US (occurrence: US)
  Receive Date: 20201021
  Receipt Date: 20201021
  Transmission Date: 20210114
  Serious: Yes (Other)
  Sender: FDA-Public Use
  Company Number: US-VIRTUS PHARMACEUTICALS, LLC-2020VTS00077

PATIENT
  Age: 55 Year
  Sex: Female

DRUGS (3)
  1. PROGESTERONE. [Suspect]
     Active Substance: PROGESTERONE
     Dosage: UNK
     Dates: start: 202009
  2. PROGESTERONE. [Suspect]
     Active Substance: PROGESTERONE
     Dosage: UNK
     Dates: end: 202009
  3. ESTROGEN (UNKNOWN MANUFACTURER) [Suspect]
     Active Substance: ESTROGENS
     Dosage: UNK

REACTIONS (4)
  - Vision blurred [Not Recovered/Not Resolved]
  - Somnolence [Unknown]
  - Visual impairment [Not Recovered/Not Resolved]
  - Vitreous detachment [Not Recovered/Not Resolved]

NARRATIVE: CASE EVENT DATE: 2019
